FAERS Safety Report 8609667-5 (Version None)
Quarter: 2012Q3

REPORT INFORMATION
  Report Type: 
  Country: None (occurrence: None)
  Receive Date: 20120821
  Receipt Date: 20120814
  Transmission Date: 20120928
  Serious: Yes (Other)
  Sender: FDA-Public Use
  Company Number: PHHY2012TR070620

PATIENT
  Age: 33 Year
  Sex: Male

DRUGS (4)
  1. METHIMAZOLE [Concomitant]
     Indication: UPPER RESPIRATORY TRACT INFECTION
     Route: 042
  2. AMOXICILLIN AND CLAVULANATE POTASSIUM [Suspect]
     Indication: UPPER RESPIRATORY TRACT INFECTION
     Route: 048
  3. MORPHINE [Concomitant]
     Indication: PAIN
     Dosage: 2 MG, ONCE/SINGLE
     Route: 042
  4. CEFAZOLIN [Suspect]
     Indication: UPPER RESPIRATORY TRACT INFECTION
     Route: 042

REACTIONS (6)
  - KOUNIS SYNDROME [None]
  - VENTRICULAR HYPOKINESIA [None]
  - CHEST PAIN [None]
  - CHEST DISCOMFORT [None]
  - ELECTROCARDIOGRAM ST SEGMENT ELEVATION [None]
  - ANGINA PECTORIS [None]
